FAERS Safety Report 8582369-X (Version None)
Quarter: 2012Q3

REPORT INFORMATION
  Report Type: 
  Country: None (occurrence: None)
  Receive Date: 20120809
  Receipt Date: 20120724
  Transmission Date: 20120928
  Serious: Yes (Hospitalization, Congenital Anomaly)
  Sender: FDA-Public Use
  Company Number: US-GLAXOSMITHKLINE-A0843344A

PATIENT
  Sex: Male

DRUGS (4)
  1. KEPPRA [Suspect]
     Indication: CONVULSION
     Dosage: 2000MG TWICE PER DAY
     Route: 064
     Dates: end: 20090529
  2. MULTI-VITAMIN [Concomitant]
     Indication: PROPHYLAXIS
     Dosage: 1UNIT PER DAY
     Route: 064
     Dates: end: 20090529
  3. ZYRTEC [Concomitant]
     Indication: HYPERSENSITIVITY
     Route: 064
     Dates: end: 20090529
  4. LAMICTAL [Suspect]
     Indication: CONVULSION
     Route: 064
     Dates: end: 20090529

REACTIONS (2)
  - EXOMPHALOS [None]
  - FOETAL EXPOSURE DURING PREGNANCY [None]
